FAERS Safety Report 25355283 (Version 1)
Quarter: 2025Q2

REPORT INFORMATION
  Report Type: Spontaneous
  Country: CN (occurrence: CN)
  Receive Date: 20250524
  Receipt Date: 20250524
  Transmission Date: 20250716
  Serious: Yes (Other)
  Sender: NOVARTIS
  Company Number: CN-002147023-NVSC2025CN083357

PATIENT

DRUGS (1)
  1. SACUBITRIL\VALSARTAN [Suspect]
     Active Substance: SACUBITRIL\VALSARTAN
     Indication: Cardiac failure
     Dosage: 25 MG, BID (SPECIFICATION: 50 MG/ TABLET, THE DOSAGE WAS DOUBLED EVERY 2 TO 4 WEEKS TO A MAXIMUM TOL
     Route: 048

REACTIONS (3)
  - Renal failure [Unknown]
  - Off label use [Unknown]
  - Wrong technique in product usage process [Unknown]
